FAERS Safety Report 6095775-2 (Version None)
Quarter: 2009Q1

REPORT INFORMATION
  Report Type: 
  Country: None (occurrence: None)
  Receive Date: 20090227
  Receipt Date: 20080611
  Transmission Date: 20090719
  Serious: No
  Sender: FDA-Public Use
  Company Number: A0732735A

PATIENT
  Age: 52 Year
  Sex: Female

DRUGS (5)
  1. LAMICTAL [Suspect]
     Indication: DRUG USE FOR UNKNOWN INDICATION
     Route: 048
  2. LUNESTA [Suspect]
     Indication: INSOMNIA
     Dosage: 3MG AT NIGHT
     Route: 048
     Dates: start: 20060101
  3. GABAPENTIN [Suspect]
  4. LUVOX [Suspect]
  5. LITHIUM [Suspect]

REACTIONS (3)
  - AMNESIA [None]
  - COGNITIVE DISORDER [None]
  - TREATMENT NONCOMPLIANCE [None]
